FAERS Safety Report 5490222-3 (Version None)
Quarter: 2007Q4

REPORT INFORMATION
  Report Type: 
  Country: None (occurrence: None)
  Receive Date: 20071017
  Receipt Date: 20071009
  Transmission Date: 20080405
  Serious: Yes (Other)
  Sender: FDA-Public Use
  Company Number: 2007RL000451

PATIENT
  Sex: Male

DRUGS (2)
  1. DYNACIRC [Suspect]
     Indication: DRUG USE FOR UNKNOWN INDICATION
     Dosage: QD
  2. PROGRAF [Suspect]
     Indication: DRUG USE FOR UNKNOWN INDICATION

REACTIONS (3)
  - DRUG INEFFECTIVE [None]
  - DRUG INTERACTION [None]
  - RENAL TRANSPLANT [None]
